FAERS Safety Report 16246508 (Version 2)
Quarter: 2019Q2

REPORT INFORMATION
  Report Type: Report from Study
  Country: None (occurrence: US)
  Receive Date: 20190427
  Receipt Date: 20190515
  Transmission Date: 20190711
  Serious: Yes (Other)
  Sender: FDA-Public Use
  Company Number: US-ABBVIE-19K-163-2753658-00

PATIENT
  Sex: Female

DRUGS (2)
  1. HUMIRA [Suspect]
     Active Substance: ADALIMUMAB
     Route: 058
  2. HUMIRA [Suspect]
     Active Substance: ADALIMUMAB
     Indication: PSORIATIC ARTHROPATHY
     Route: 058

REACTIONS (6)
  - Pain in extremity [Recovered/Resolved]
  - Peripheral swelling [Unknown]
  - Nodule [Unknown]
  - Blood pressure abnormal [Unknown]
  - Peripheral swelling [Not Recovered/Not Resolved]
  - Spinal stenosis [Unknown]
